FAERS Safety Report 11603397 (Version 1)
Quarter: 2015Q4

REPORT INFORMATION
  Report Type: Spontaneous
  Country: FR (occurrence: FR)
  Receive Date: 20151007
  Receipt Date: 20151007
  Transmission Date: 20160304
  Serious: Yes (Hospitalization)
  Sender: FDA-Public Use
  Company Number: FR-HOSPIRA-3024257

PATIENT
  Age: 54 Year
  Sex: Male

DRUGS (1)
  1. OXALIPLATIN. [Suspect]
     Active Substance: OXALIPLATIN
     Indication: RECTAL ADENOCARCINOMA
     Route: 042
     Dates: start: 20150526, end: 20150526

REACTIONS (7)
  - Urticaria [Recovered/Resolved]
  - Burning sensation [Recovered/Resolved]
  - Hyperhidrosis [Recovered/Resolved]
  - Diarrhoea [Recovered/Resolved]
  - Pruritus generalised [Recovered/Resolved]
  - Infusion related reaction [Recovered/Resolved]
  - Hypotension [Recovered/Resolved]

NARRATIVE: CASE EVENT DATE: 20150526
